FAERS Safety Report 12654761 (Version 1)
Quarter: 2016Q3

REPORT INFORMATION
  Report Type: Spontaneous
  Country: US (occurrence: None)
  Receive Date: 20160815
  Receipt Date: 20160815
  Transmission Date: 20161109
  Serious: Yes (Disabling)
  Sender: FDA-Public Use
  Company Number: None

PATIENT
  Age: 77 Year
  Sex: Female
  Weight: 86.18 kg

DRUGS (13)
  1. VITAMIN B12 [Concomitant]
     Active Substance: CYANOCOBALAMIN
  2. DICLOFENAC [Concomitant]
     Active Substance: DICLOFENAC
  3. VITAMIN D3 [Concomitant]
     Active Substance: CHOLECALCIFEROL
  4. L THYROXINE [Suspect]
     Active Substance: LEVOTHYROXINE SODIUM
     Indication: HYPOTHYROIDISM
     Dosage: 125 MCG 1 PILL 1 X MORNING BY MOUTH 30 MINUTES BEFORE BREAKFAST.
     Route: 048
     Dates: start: 1981
  5. ATIVAN [Concomitant]
     Active Substance: LORAZEPAM
  6. RESVERATROL [Concomitant]
     Active Substance: RESVERATROL
  7. OMEGA QT [Concomitant]
  8. MAGNESIUM [Concomitant]
     Active Substance: MAGNESIUM
  9. ENERGY FAMILY [Concomitant]
  10. METFORMIN [Concomitant]
     Active Substance: METFORMIN HYDROCHLORIDE
  11. FUROSEMIDE. [Concomitant]
     Active Substance: FUROSEMIDE
  12. ASPIRIN. [Concomitant]
     Active Substance: ASPIRIN
  13. FIBER ONE + IMODIUM [Concomitant]

REACTIONS (4)
  - Insomnia [None]
  - Fatigue [None]
  - Diarrhoea [None]
  - Haemorrhoidal haemorrhage [None]
